FAERS Safety Report 18184730 (Version 1)
Quarter: 2020Q3

REPORT INFORMATION
  Report Type: Spontaneous
  Country: US (occurrence: US)
  Receive Date: 20200824
  Receipt Date: 20200824
  Transmission Date: 20201103
  Serious: Yes (Hospitalization)
  Sender: FDA-Public Use
  Company Number: US-JNJFOC-20200747326

PATIENT

DRUGS (1)
  1. NEUTROGENA ON?THE?SPOT ACNE TREATMENT VANISHING FORMULA [Suspect]
     Active Substance: BENZOYL PEROXIDE
     Indication: SKIN DISORDER
     Route: 061
     Dates: start: 20200514

REACTIONS (1)
  - Chemical burn [Not Recovered/Not Resolved]

NARRATIVE: CASE EVENT DATE: 20200516
